FAERS Safety Report 6904036-8 (Version None)
Quarter: 2010Q3

REPORT INFORMATION
  Report Type: 
  Country: None (occurrence: None)
  Receive Date: 20100804
  Receipt Date: 20090223
  Transmission Date: 20110219
  Serious: No
  Sender: FDA-Public Use
  Company Number: US-PFIZER INC-2008090152

PATIENT
  Sex: Female

DRUGS (3)
  1. LYRICA [Suspect]
     Indication: MYALGIA
     Dosage: 75 MG, 2X/DAY
     Route: 048
     Dates: start: 20081013
  2. DRUG, UNSPECIFIED [Concomitant]
  3. SOFTENERS, EMOLLIENTS [Concomitant]

REACTIONS (3)
  - BLOOD GLUCOSE ABNORMAL [None]
  - CONSTIPATION [None]
  - DISTURBANCE IN ATTENTION [None]
